FAERS Safety Report 9115020 (Version 2)
Quarter: 2013Q2

REPORT INFORMATION
  Report Type: Spontaneous
  Country: US (occurrence: US)
  Receive Date: 20130128
  Receipt Date: 20130412
  Transmission Date: 20140414
  Serious: No
  Sender: FDA-Public Use
  Company Number: US-JNJFOC-20130110506

PATIENT
  Sex: Female

DRUGS (8)
  1. INVEGA SUSTENNA [Suspect]
     Indication: PARANOIA
     Route: 030
     Dates: start: 20121227
  2. INVEGA SUSTENNA [Suspect]
     Indication: PARANOIA
     Route: 030
  3. INVEGA SUSTENNA [Suspect]
     Indication: PARANOIA
     Route: 030
  4. INVEGA SUSTENNA [Suspect]
     Indication: DELUSION
     Route: 030
     Dates: start: 20121227
  5. INVEGA SUSTENNA [Suspect]
     Indication: DELUSION
     Route: 030
  6. INVEGA SUSTENNA [Suspect]
     Indication: DELUSION
     Route: 030
     Dates: start: 20121219
  7. INVEGA SUSTENNA [Suspect]
     Indication: DELUSION
     Route: 030
  8. INVEGA SUSTENNA [Suspect]
     Indication: PARANOIA
     Route: 030
     Dates: start: 20121219

REACTIONS (2)
  - Dystonia [Recovering/Resolving]
  - Cogwheel rigidity [Recovering/Resolving]
